FAERS Safety Report 5086820-1 (Version None)
Quarter: 2006Q3

REPORT INFORMATION
  Report Type: 
  Country: None (occurrence: None)
  Receive Date: 20060823
  Receipt Date: 20060802
  Transmission Date: 20061208
  Serious: Yes (Death)
  Sender: FDA-Public Use
  Company Number: US-ABBOTT-06P-163-0339410-00

PATIENT
  Sex: Male
  Weight: 95 kg

DRUGS (14)
  1. TRICOR [Suspect]
     Indication: DYSLIPIDAEMIA
     Route: 048
     Dates: end: 20060711
  2. PIOGLITAZONE HCL [Suspect]
     Indication: DIABETES MELLITUS
     Route: 048
     Dates: end: 20060711
  3. NICOTINIC ACID [Suspect]
     Indication: HIGH DENSITY LIPOPROTEIN DECREASED
     Route: 048
     Dates: start: 20060711, end: 20060711
  4. NICOTINIC ACID [Suspect]
     Indication: BLOOD CHOLESTEROL INCREASED
  5. BUPROPION HCL [Suspect]
     Indication: DEPRESSION
     Route: 048
     Dates: end: 20060711
  6. VENLAFAXINE HCL [Suspect]
     Indication: DEPRESSION
     Route: 048
     Dates: end: 20060711
  7. LORAZEPAM [Suspect]
     Indication: DEPRESSION
     Route: 048
     Dates: end: 20060711
  8. TRAZODONE HCL [Suspect]
     Indication: DEPRESSION
     Route: 048
     Dates: end: 20060711
  9. ATENOLOL [Suspect]
     Indication: TACHYARRHYTHMIA
     Route: 048
     Dates: end: 20060711
  10. DIGOXIN [Suspect]
     Indication: TACHYARRHYTHMIA
     Route: 048
     Dates: end: 20060711
  11. GLUCOPHAGE [Suspect]
     Indication: DIABETES MELLITUS
     Route: 048
     Dates: end: 20060711
  12. GLIPIZIDE [Suspect]
     Indication: DIABETES MELLITUS
     Route: 048
     Dates: end: 20060711
  13. INSULIN GLARGINE [Suspect]
     Indication: DIABETES MELLITUS
     Route: 048
     Dates: end: 20060711
  14. ATORVASTATIN CALCIUM [Suspect]
     Indication: DRUG USE FOR UNKNOWN INDICATION

REACTIONS (11)
  - BLOOD CHOLESTEROL INCREASED [None]
  - DEPRESSION [None]
  - DIABETES MELLITUS [None]
  - DRUG INTERACTION [None]
  - DYSLIPIDAEMIA [None]
  - FLUSHING [None]
  - INCORRECT DOSE ADMINISTERED [None]
  - MEDICATION ERROR [None]
  - MYOCARDIAL INFARCTION [None]
  - RESPIRATORY ARREST [None]
  - TACHYARRHYTHMIA [None]
